FAERS Safety Report 14568677 (Version 1)
Quarter: 2018Q1

REPORT INFORMATION
  Report Type: Spontaneous
  Country: GB (occurrence: GB)
  Receive Date: 20180223
  Receipt Date: 20180223
  Transmission Date: 20180509
  Serious: Yes (Other)
  Sender: FDA-Public Use
  Company Number: GB-SA-2018SA038403

PATIENT
  Age: 60 Year
  Sex: Female

DRUGS (1)
  1. CAPRELSA [Suspect]
     Active Substance: VANDETANIB
     Indication: THYROID CANCER
     Route: 048
     Dates: start: 2017

REACTIONS (4)
  - Condition aggravated [Unknown]
  - Renal impairment [Unknown]
  - Electrocardiogram QT prolonged [Unknown]
  - Blood creatine increased [Unknown]
